FAERS Safety Report 5854802-5 (Version None)
Quarter: 2008Q3

REPORT INFORMATION
  Report Type: 
  Country: None (occurrence: None)
  Receive Date: 20080822
  Receipt Date: 20080124
  Transmission Date: 20090109
  Serious: No
  Sender: FDA-Public Use
  Company Number: US-ABBOTT-08P-163-0435182-00

PATIENT
  Sex: Female
  Weight: 67.192 kg

DRUGS (10)
  1. SYNTHROID [Suspect]
     Indication: HYPOTHYROIDISM
     Route: 048
     Dates: start: 20060101, end: 20080123
  2. SYNTHROID [Suspect]
     Route: 048
     Dates: start: 20080124
  3. PHENYTOIN [Concomitant]
     Indication: CONVULSION
     Route: 048
  4. ESTROGENS CONJUGATED [Concomitant]
     Indication: MENOPAUSE
     Route: 048
  5. PROGESTERONE [Concomitant]
     Indication: MENOPAUSE
     Route: 048
  6. MULTI-VITAMINS [Concomitant]
     Indication: VITAMIN SUPPLEMENTATION
     Route: 048
  7. VITAMIN E [Concomitant]
     Indication: VITAMIN SUPPLEMENTATION
     Route: 048
  8. POTASSIUM CHLORIDE [Concomitant]
     Indication: MINERAL SUPPLEMENTATION
     Route: 048
  9. GINKGO BILOBA [Concomitant]
     Indication: PHYTOTHERAPY
     Route: 048
  10. CALCIUM [Concomitant]
     Indication: MINERAL SUPPLEMENTATION
     Route: 048

REACTIONS (4)
  - DRUG INEFFECTIVE [None]
  - DRY SKIN [None]
  - HAIR TEXTURE ABNORMAL [None]
  - PALPITATIONS [None]
